FAERS Safety Report 16351052 (Version 2)
Quarter: 2019Q2

REPORT INFORMATION
  Report Type: Report from Study
  Country: FR (occurrence: FR)
  Receive Date: 20190524
  Receipt Date: 20190527
  Transmission Date: 20190711
  Serious: Yes (Death, Hospitalization)
  Sender: FDA-Public Use
  Company Number: FR-ACTELION-A-CH2016-143767

PATIENT
  Age: 55 Year
  Sex: Female

DRUGS (14)
  1. UPTRAVI [Suspect]
     Active Substance: SELEXIPAG
     Dosage: 200 ?G, BID
     Route: 048
     Dates: start: 20161007
  2. UPTRAVI [Suspect]
     Active Substance: SELEXIPAG
     Dosage: 1200 ?G, BID
     Route: 048
     Dates: start: 20161128
  3. PREVISCAN [Concomitant]
     Dosage: 0.50 G, OD
  4. ALDACTONE [Concomitant]
     Active Substance: SPIRONOLACTONE
     Dosage: 50 MG, OD
  5. ADCIRCA [Concomitant]
     Active Substance: TADALAFIL
     Dosage: 40 MG, BID
     Dates: start: 2012
  6. UPTRAVI [Suspect]
     Active Substance: SELEXIPAG
     Indication: PULMONARY ARTERIAL HYPERTENSION
     Dosage: 800 ?G, BID
     Route: 048
     Dates: start: 20161205
  7. UPTRAVI [Suspect]
     Active Substance: SELEXIPAG
     Dosage: 400 ?G, BID
     Route: 048
     Dates: start: 20161014
  8. UPTRAVI [Suspect]
     Active Substance: SELEXIPAG
     Dosage: 800 ?G, BID
     Route: 048
     Dates: start: 20161028
  9. UPTRAVI [Suspect]
     Active Substance: SELEXIPAG
     Dosage: 800 MCG
     Route: 048
  10. TRACLEER [Concomitant]
     Active Substance: BOSENTAN
     Indication: PULMONARY ARTERIAL HYPERTENSION
     Dosage: 125 MG, BID
     Route: 048
     Dates: start: 2010
  11. UPTRAVI [Suspect]
     Active Substance: SELEXIPAG
     Dosage: 600 ?G, BID
     Route: 048
     Dates: start: 20161021
  12. UPTRAVI [Suspect]
     Active Substance: SELEXIPAG
     Dosage: 1000 ?G, BID
     Route: 048
     Dates: start: 20161114
  13. UPTRAVI [Suspect]
     Active Substance: SELEXIPAG
     Dosage: 1000 ?G, BID
     Route: 048
     Dates: start: 20161205
  14. LASILIX [Concomitant]
     Active Substance: FUROSEMIDE
     Dosage: 20 MG, OD

REACTIONS (23)
  - Brain oedema [Fatal]
  - Cerebral haematoma [Fatal]
  - Somnolence [Recovered/Resolved]
  - Rash [Recovered/Resolved]
  - Abdominal pain [Recovered/Resolved]
  - Arthralgia [Recovered/Resolved]
  - Migraine [Recovered/Resolved]
  - Pain in jaw [Recovered/Resolved]
  - Diarrhoea [Recovered/Resolved]
  - Eye pain [Recovered/Resolved]
  - Headache [Unknown]
  - Feeling cold [Recovered/Resolved]
  - Aneurysm ruptured [Fatal]
  - Neurological decompensation [Fatal]
  - Cold sweat [Recovered/Resolved]
  - Bedridden [Unknown]
  - Decreased appetite [Unknown]
  - Nausea [Recovered/Resolved]
  - Hot flush [Recovered/Resolved]
  - Epistaxis [Recovered/Resolved]
  - Rhinalgia [Recovered/Resolved]
  - Confusional state [Fatal]
  - Fatigue [Recovered/Resolved]

NARRATIVE: CASE EVENT DATE: 20161009
